FAERS Safety Report 26031767 (Version 1)
Quarter: 2025Q4

REPORT INFORMATION
  Report Type: Spontaneous
  Country: EU (occurrence: EU)
  Receive Date: 20251112
  Receipt Date: 20251112
  Transmission Date: 20260119
  Serious: Yes (Life-Threatening, Hospitalization, Other)
  Sender: CHEPLAPHARM
  Company Number: EU-MYLANLABS-2025M1089205

PATIENT
  Age: 58 Year
  Sex: Female

DRUGS (3)
  1. OLANZAPINE [Suspect]
     Active Substance: OLANZAPINE
     Indication: Product used for unknown indication
     Dates: start: 202509
  2. QUETIAPINE [Suspect]
     Active Substance: QUETIAPINE
  3. CLOZAPINE [Suspect]
     Active Substance: CLOZAPINE
     Indication: Schizophrenia
     Dosage: DAILY DOSE: 700 MILLIGRAM
     Route: 048
     Dates: end: 202509

REACTIONS (6)
  - Agranulocytosis [Recovered/Resolved]
  - Mental impairment [Not Recovered/Not Resolved]
  - B-cell lymphoma [Not Recovered/Not Resolved]
  - Neutropenia [Recovered/Resolved]
  - White blood cell count decreased [Recovered/Resolved]
  - Nasopharyngitis [Recovered/Resolved]

NARRATIVE: CASE EVENT DATE: 20250101
